FAERS Safety Report 4767570-5 (Version None)
Quarter: 2005Q3

REPORT INFORMATION
  Report Type: 
  Country: None (occurrence: None)
  Receive Date: 20050913
  Receipt Date: 20050907
  Transmission Date: 20060218
  Serious: Yes (Death, Hospitalization)
  Sender: FDA-Public Use
  Company Number: US-JNJFOC-20050901829

PATIENT
  Age: 49 Year
  Sex: Female

DRUGS (2)
  1. EXTRA STRENGTH ACETAMINOPHEN/DIPHENHYDRAMINE [Suspect]
     Indication: SUICIDE ATTEMPT
     Dosage: 2 BOTTLES (EACH CONTAINING 48 CAPLETS)
     Route: 048
  2. ZOLPIDEM [Suspect]
     Dosage: MAXIMUM OF 150 MG
     Route: 048

REACTIONS (11)
  - APNOEA [None]
  - CARDIAC ARREST [None]
  - COMA [None]
  - COMPLETED SUICIDE [None]
  - DRUG TOXICITY [None]
  - INTENTIONAL MISUSE [None]
  - METABOLIC ACIDOSIS [None]
  - MULTIPLE DRUG OVERDOSE [None]
  - OXYGEN SATURATION DECREASED [None]
  - TRANSAMINASES INCREASED [None]
  - VENTRICULAR TACHYCARDIA [None]
